FAERS Safety Report 6123057-9 (Version None)
Quarter: 2009Q1

REPORT INFORMATION
  Report Type: 
  Country: None (occurrence: None)
  Receive Date: 20090318
  Receipt Date: 20090305
  Transmission Date: 20090719
  Serious: Yes (Death, Hospitalization)
  Sender: FDA-Public Use
  Company Number: GB-PFIZER INC-2009173885

PATIENT

DRUGS (5)
  1. DALTEPARIN SODIUM [Suspect]
     Indication: LUNG NEOPLASM MALIGNANT
     Dosage: UNK
     Dates: start: 20090209, end: 20090219
  2. CARBOPLATIN [Suspect]
     Indication: LUNG NEOPLASM MALIGNANT
     Dosage: 560 MG, UNK
     Dates: start: 20090209
  3. GEMCITABINE [Suspect]
     Indication: LUNG NEOPLASM MALIGNANT
     Dosage: 1900 MG, UNK
     Dates: start: 20090209
  4. OMEPRAZOLE [Concomitant]
     Dosage: 20 MG, UNK
     Route: 048
     Dates: start: 20090209, end: 20090219
  5. IBUPROFEN [Concomitant]
     Dosage: 1600 MG, UNK
     Route: 048
     Dates: start: 20090209, end: 20090219

REACTIONS (3)
  - DYSPNOEA [None]
  - NEUTROPENIA [None]
  - NEUTROPENIC SEPSIS [None]
